FAERS Safety Report 10091795 (Version 1)
Quarter: 2014Q2

REPORT INFORMATION
  Report Type: Spontaneous
  Country: US (occurrence: US)
  Receive Date: 20140421
  Receipt Date: 20140421
  Transmission Date: 20141212
  Serious: No
  Sender: FDA-Public Use
  Company Number: US-PURDUE-USA-2006-0023686

PATIENT
  Sex: Male

DRUGS (2)
  1. OXYIR CAPSULES 5 MG [Suspect]
     Indication: BACK PAIN
     Dosage: 10 MG, Q6H
     Route: 048
  2. UNKNOWN [Concomitant]

REACTIONS (4)
  - Urinary tract pain [Unknown]
  - Feeling abnormal [Unknown]
  - Feeling drunk [Unknown]
  - Dyspnoea [Unknown]
